FAERS Safety Report 24088415 (Version 1)
Quarter: 2024Q3

REPORT INFORMATION
  Report Type: Report from Study
  Country: TN (occurrence: TN)
  Receive Date: 20240715
  Receipt Date: 20240715
  Transmission Date: 20241017
  Serious: Yes (Hospitalization)
  Sender: ABBVIE
  Company Number: TN-ABBVIE-5836934

PATIENT
  Age: 42 Year
  Sex: Male

DRUGS (5)
  1. HUMIRA [Suspect]
     Active Substance: ADALIMUMAB
     Indication: Crohn^s disease
     Dosage: FORM STRENGTH: 40 MG
     Route: 058
     Dates: start: 201911, end: 202204
  2. HUMIRA [Suspect]
     Active Substance: ADALIMUMAB
     Dosage: 160 MG (LOADING DOSE)?FORM STRENGTH: 40 MG
     Route: 058
     Dates: start: 20190822, end: 20190822
  3. HUMIRA [Suspect]
     Active Substance: ADALIMUMAB
     Dosage: FORM STRENGTH: 40 MG
     Route: 058
     Dates: start: 20190905, end: 201910
  4. HUMIRA [Suspect]
     Active Substance: ADALIMUMAB
     Dosage: FORM STRENGTH: 40 MG
     Route: 058
     Dates: start: 20240402
  5. AZATHIOPRINE SODIUM [Concomitant]
     Active Substance: AZATHIOPRINE SODIUM
     Indication: Crohn^s disease
     Dosage: 2 TABLET?START DATE TEXT: MORE THAN 2 YEARS AGO
     Route: 048

REACTIONS (6)
  - Decreased appetite [Not Recovered/Not Resolved]
  - Hypoglycaemia [Recovered/Resolved]
  - Eye disorder [Unknown]
  - Vomiting [Not Recovered/Not Resolved]
  - Headache [Not Recovered/Not Resolved]
  - Asthenia [Not Recovered/Not Resolved]

NARRATIVE: CASE EVENT DATE: 20240101
